FAERS Safety Report 21883836 (Version 1)
Quarter: 2023Q1

REPORT INFORMATION
  Report Type: Report from Study
  Country: US (occurrence: US)
  Receive Date: 20230119
  Receipt Date: 20230119
  Transmission Date: 20230418
  Serious: No
  Sender: FDA-Public Use
  Company Number: US-ABBVIE-4244378

PATIENT
  Age: 63 Year
  Sex: Male

DRUGS (2)
  1. HUMIRA [Suspect]
     Active Substance: ADALIMUMAB
     Indication: Psoriatic arthropathy
     Dosage: CF?FORM STRENGTH: 40 MILLIGRAM
     Route: 058
     Dates: start: 20220310
  2. TAMSULOSIN [Concomitant]
     Active Substance: TAMSULOSIN
     Indication: Urinary tract disorder
     Dates: start: 202211

REACTIONS (2)
  - Prostatomegaly [Recovered/Resolved]
  - Injection site swelling [Recovered/Resolved]

NARRATIVE: CASE EVENT DATE: 20221119
